FAERS Safety Report 20540205 (Version 1)
Quarter: 2022Q1

REPORT INFORMATION
  Report Type: Report from Study
  Country: HR (occurrence: HR)
  Receive Date: 20220302
  Receipt Date: 20220302
  Transmission Date: 20220423
  Serious: Yes (Death, Disabling, Other)
  Sender: FDA-Public Use
  Company Number: HR-LAT-2111635914729Em

PATIENT

DRUGS (110)
  1. RISPERIDONE [Suspect]
     Active Substance: RISPERIDONE
     Indication: Schizophrenia
     Route: 065
  2. RISPERIDONE [Suspect]
     Active Substance: RISPERIDONE
     Indication: Schizophrenia
  3. RISPERIDONE [Suspect]
     Active Substance: RISPERIDONE
     Indication: Product used for unknown indication
  4. RISPERIDONE [Suspect]
     Active Substance: RISPERIDONE
     Indication: Depression
  5. RISPERIDONE [Suspect]
     Active Substance: RISPERIDONE
     Indication: Insomnia
  6. RISPERIDONE [Suspect]
     Active Substance: RISPERIDONE
     Indication: Bipolar disorder
  7. RISPERIDONE [Suspect]
     Active Substance: RISPERIDONE
     Indication: Delusional disorder, unspecified type
  8. RISPERIDONE [Suspect]
     Active Substance: RISPERIDONE
     Indication: Post-traumatic stress disorder
  9. RISPERIDONE [Suspect]
     Active Substance: RISPERIDONE
     Indication: Psychotic disorder
  10. RISPERIDONE [Suspect]
     Active Substance: RISPERIDONE
     Indication: Dementia Alzheimer^s type
  11. HALDOL [Suspect]
     Active Substance: HALOPERIDOL
     Indication: Schizophrenia
     Route: 065
  12. HALDOL [Suspect]
     Active Substance: HALOPERIDOL
     Indication: Schizophrenia
  13. HALDOL [Suspect]
     Active Substance: HALOPERIDOL
     Indication: Product used for unknown indication
  14. HALDOL [Suspect]
     Active Substance: HALOPERIDOL
     Indication: Depression
  15. HALDOL [Suspect]
     Active Substance: HALOPERIDOL
     Indication: Insomnia
  16. HALDOL [Suspect]
     Active Substance: HALOPERIDOL
     Indication: Bipolar disorder
  17. HALDOL [Suspect]
     Active Substance: HALOPERIDOL
     Indication: Delusional disorder, unspecified type
  18. HALDOL [Suspect]
     Active Substance: HALOPERIDOL
     Indication: Post-traumatic stress disorder
  19. HALDOL [Suspect]
     Active Substance: HALOPERIDOL
     Indication: Psychotic disorder
  20. HALDOL [Suspect]
     Active Substance: HALOPERIDOL
     Indication: Dementia Alzheimer^s type
  21. INVEGA [Suspect]
     Active Substance: PALIPERIDONE
     Indication: Schizophrenia
     Route: 065
  22. INVEGA [Suspect]
     Active Substance: PALIPERIDONE
     Indication: Schizophrenia
  23. INVEGA [Suspect]
     Active Substance: PALIPERIDONE
     Indication: Product used for unknown indication
  24. INVEGA [Suspect]
     Active Substance: PALIPERIDONE
     Indication: Depression
  25. INVEGA [Suspect]
     Active Substance: PALIPERIDONE
     Indication: Insomnia
  26. INVEGA [Suspect]
     Active Substance: PALIPERIDONE
     Indication: Bipolar disorder
  27. INVEGA [Suspect]
     Active Substance: PALIPERIDONE
     Indication: Delusional disorder, unspecified type
  28. INVEGA [Suspect]
     Active Substance: PALIPERIDONE
     Indication: Post-traumatic stress disorder
  29. INVEGA [Suspect]
     Active Substance: PALIPERIDONE
     Indication: Psychotic disorder
  30. INVEGA [Suspect]
     Active Substance: PALIPERIDONE
     Indication: Dementia Alzheimer^s type
  31. PALIPERIDONE PALMITATE [Suspect]
     Active Substance: PALIPERIDONE PALMITATE
     Indication: Schizophrenia
     Route: 030
  32. PALIPERIDONE PALMITATE [Suspect]
     Active Substance: PALIPERIDONE PALMITATE
     Indication: Schizophrenia
  33. PALIPERIDONE PALMITATE [Suspect]
     Active Substance: PALIPERIDONE PALMITATE
     Indication: Product used for unknown indication
  34. PALIPERIDONE PALMITATE [Suspect]
     Active Substance: PALIPERIDONE PALMITATE
     Indication: Depression
  35. PALIPERIDONE PALMITATE [Suspect]
     Active Substance: PALIPERIDONE PALMITATE
     Indication: Insomnia
  36. PALIPERIDONE PALMITATE [Suspect]
     Active Substance: PALIPERIDONE PALMITATE
     Indication: Bipolar disorder
  37. PALIPERIDONE PALMITATE [Suspect]
     Active Substance: PALIPERIDONE PALMITATE
     Indication: Delusional disorder, unspecified type
  38. PALIPERIDONE PALMITATE [Suspect]
     Active Substance: PALIPERIDONE PALMITATE
     Indication: Post-traumatic stress disorder
  39. PALIPERIDONE PALMITATE [Suspect]
     Active Substance: PALIPERIDONE PALMITATE
     Indication: Psychotic disorder
  40. PALIPERIDONE PALMITATE [Suspect]
     Active Substance: PALIPERIDONE PALMITATE
     Indication: Dementia Alzheimer^s type
  41. OLANZAPINE [Suspect]
     Active Substance: OLANZAPINE
     Indication: Schizophrenia
     Route: 065
  42. OLANZAPINE [Suspect]
     Active Substance: OLANZAPINE
     Indication: Schizophrenia
  43. OLANZAPINE [Suspect]
     Active Substance: OLANZAPINE
     Indication: Product used for unknown indication
  44. OLANZAPINE [Suspect]
     Active Substance: OLANZAPINE
     Indication: Depression
  45. OLANZAPINE [Suspect]
     Active Substance: OLANZAPINE
     Indication: Insomnia
  46. OLANZAPINE [Suspect]
     Active Substance: OLANZAPINE
     Indication: Bipolar disorder
  47. OLANZAPINE [Suspect]
     Active Substance: OLANZAPINE
     Indication: Delusional disorder, unspecified type
  48. OLANZAPINE [Suspect]
     Active Substance: OLANZAPINE
     Indication: Post-traumatic stress disorder
  49. OLANZAPINE [Suspect]
     Active Substance: OLANZAPINE
     Indication: Psychotic disorder
  50. OLANZAPINE [Suspect]
     Active Substance: OLANZAPINE
     Indication: Dementia Alzheimer^s type
  51. QUETIAPINE [Suspect]
     Active Substance: QUETIAPINE
     Indication: Schizophrenia
     Route: 065
  52. QUETIAPINE [Suspect]
     Active Substance: QUETIAPINE
     Indication: Schizophrenia
  53. QUETIAPINE [Suspect]
     Active Substance: QUETIAPINE
     Indication: Product used for unknown indication
  54. QUETIAPINE [Suspect]
     Active Substance: QUETIAPINE
     Indication: Depression
  55. QUETIAPINE [Suspect]
     Active Substance: QUETIAPINE
     Indication: Insomnia
  56. QUETIAPINE [Suspect]
     Active Substance: QUETIAPINE
     Indication: Bipolar disorder
  57. QUETIAPINE [Suspect]
     Active Substance: QUETIAPINE
     Indication: Delusional disorder, unspecified type
  58. QUETIAPINE [Suspect]
     Active Substance: QUETIAPINE
     Indication: Post-traumatic stress disorder
  59. QUETIAPINE [Suspect]
     Active Substance: QUETIAPINE
     Indication: Psychotic disorder
  60. QUETIAPINE [Suspect]
     Active Substance: QUETIAPINE
     Indication: Dementia Alzheimer^s type
  61. CARBAMAZEPINE [Suspect]
     Active Substance: CARBAMAZEPINE
     Indication: Schizophrenia
     Route: 065
  62. CARBAMAZEPINE [Suspect]
     Active Substance: CARBAMAZEPINE
     Indication: Schizophrenia
  63. CARBAMAZEPINE [Suspect]
     Active Substance: CARBAMAZEPINE
     Indication: Product used for unknown indication
  64. CARBAMAZEPINE [Suspect]
     Active Substance: CARBAMAZEPINE
     Indication: Depression
  65. CARBAMAZEPINE [Suspect]
     Active Substance: CARBAMAZEPINE
     Indication: Insomnia
  66. CARBAMAZEPINE [Suspect]
     Active Substance: CARBAMAZEPINE
     Indication: Bipolar disorder
  67. CARBAMAZEPINE [Suspect]
     Active Substance: CARBAMAZEPINE
     Indication: Delusional disorder, unspecified type
  68. CARBAMAZEPINE [Suspect]
     Active Substance: CARBAMAZEPINE
     Indication: Post-traumatic stress disorder
  69. CARBAMAZEPINE [Suspect]
     Active Substance: CARBAMAZEPINE
     Indication: Psychotic disorder
  70. CARBAMAZEPINE [Suspect]
     Active Substance: CARBAMAZEPINE
     Indication: Dementia Alzheimer^s type
  71. VALPROIC ACID [Suspect]
     Active Substance: VALPROIC ACID
     Indication: Schizophrenia
     Route: 065
  72. VALPROIC ACID [Suspect]
     Active Substance: VALPROIC ACID
     Indication: Schizophrenia
  73. VALPROIC ACID [Suspect]
     Active Substance: VALPROIC ACID
     Indication: Product used for unknown indication
  74. VALPROIC ACID [Suspect]
     Active Substance: VALPROIC ACID
     Indication: Depression
  75. VALPROIC ACID [Suspect]
     Active Substance: VALPROIC ACID
     Indication: Insomnia
  76. VALPROIC ACID [Suspect]
     Active Substance: VALPROIC ACID
     Indication: Bipolar disorder
  77. VALPROIC ACID [Suspect]
     Active Substance: VALPROIC ACID
     Indication: Delusional disorder, unspecified type
  78. VALPROIC ACID [Suspect]
     Active Substance: VALPROIC ACID
     Indication: Post-traumatic stress disorder
  79. VALPROIC ACID [Suspect]
     Active Substance: VALPROIC ACID
     Indication: Psychotic disorder
  80. VALPROIC ACID [Suspect]
     Active Substance: VALPROIC ACID
     Indication: Dementia Alzheimer^s type
  81. CLOZAPINE [Suspect]
     Active Substance: CLOZAPINE
     Indication: Schizophrenia
     Route: 065
  82. CLOZAPINE [Suspect]
     Active Substance: CLOZAPINE
     Indication: Schizophrenia
  83. CLOZAPINE [Suspect]
     Active Substance: CLOZAPINE
     Indication: Product used for unknown indication
  84. CLOZAPINE [Suspect]
     Active Substance: CLOZAPINE
     Indication: Depression
  85. CLOZAPINE [Suspect]
     Active Substance: CLOZAPINE
     Indication: Insomnia
  86. CLOZAPINE [Suspect]
     Active Substance: CLOZAPINE
     Indication: Bipolar disorder
  87. CLOZAPINE [Suspect]
     Active Substance: CLOZAPINE
     Indication: Delusional disorder, unspecified type
  88. CLOZAPINE [Suspect]
     Active Substance: CLOZAPINE
     Indication: Post-traumatic stress disorder
  89. CLOZAPINE [Suspect]
     Active Substance: CLOZAPINE
     Indication: Psychotic disorder
  90. CLOZAPINE [Suspect]
     Active Substance: CLOZAPINE
     Indication: Dementia Alzheimer^s type
  91. PROMAZINE [Suspect]
     Active Substance: PROMAZINE
     Indication: Schizophrenia
     Route: 065
  92. PROMAZINE [Suspect]
     Active Substance: PROMAZINE
     Indication: Schizophrenia
  93. PROMAZINE [Suspect]
     Active Substance: PROMAZINE
     Indication: Product used for unknown indication
  94. PROMAZINE [Suspect]
     Active Substance: PROMAZINE
     Indication: Depression
  95. PROMAZINE [Suspect]
     Active Substance: PROMAZINE
     Indication: Insomnia
  96. PROMAZINE [Suspect]
     Active Substance: PROMAZINE
     Indication: Bipolar disorder
  97. PROMAZINE [Suspect]
     Active Substance: PROMAZINE
     Indication: Delusional disorder, unspecified type
  98. PROMAZINE [Suspect]
     Active Substance: PROMAZINE
     Indication: Post-traumatic stress disorder
  99. PROMAZINE [Suspect]
     Active Substance: PROMAZINE
     Indication: Psychotic disorder
  100. PROMAZINE [Suspect]
     Active Substance: PROMAZINE
     Indication: Dementia Alzheimer^s type
  101. SULPIRIDE [Suspect]
     Active Substance: SULPIRIDE
     Indication: Schizophrenia
     Route: 065
  102. SULPIRIDE [Suspect]
     Active Substance: SULPIRIDE
     Indication: Schizophrenia
  103. SULPIRIDE [Suspect]
     Active Substance: SULPIRIDE
     Indication: Product used for unknown indication
  104. SULPIRIDE [Suspect]
     Active Substance: SULPIRIDE
     Indication: Depression
  105. SULPIRIDE [Suspect]
     Active Substance: SULPIRIDE
     Indication: Insomnia
  106. SULPIRIDE [Suspect]
     Active Substance: SULPIRIDE
     Indication: Bipolar disorder
  107. SULPIRIDE [Suspect]
     Active Substance: SULPIRIDE
     Indication: Delusional disorder, unspecified type
  108. SULPIRIDE [Suspect]
     Active Substance: SULPIRIDE
     Indication: Post-traumatic stress disorder
  109. SULPIRIDE [Suspect]
     Active Substance: SULPIRIDE
     Indication: Psychotic disorder
  110. SULPIRIDE [Suspect]
     Active Substance: SULPIRIDE
     Indication: Dementia Alzheimer^s type

REACTIONS (10)
  - Death [Fatal]
  - Disability [Unknown]
  - Suicide attempt [Unknown]
  - Somnolence [Unknown]
  - Weight increased [Unknown]
  - Confusional state [Unknown]
  - Tremor [Unknown]
  - Extrapyramidal disorder [Unknown]
  - Intentional overdose [Unknown]
  - Treatment noncompliance [Unknown]
